FAERS Safety Report 6600645-4 (Version None)
Quarter: 2010Q1

REPORT INFORMATION
  Report Type: 
  Country: None (occurrence: None)
  Receive Date: 20100223
  Receipt Date: 20100223
  Transmission Date: 20100710
  Serious: Yes (Other)
  Sender: FDA-Public Use
  Company Number: None

PATIENT
  Age: 43 Year
  Sex: Female
  Weight: 90.2658 kg

DRUGS (1)
  1. MIRENA [Suspect]
     Dates: start: 20091104, end: 20100219

REACTIONS (1)
  - PAIN [None]
